FAERS Safety Report 16446768 (Version 2)
Quarter: 2020Q2

REPORT INFORMATION
  Report Type: Spontaneous
  Country: GB (occurrence: GB)
  Receive Date: 20190618
  Receipt Date: 20200409
  Transmission Date: 20200713
  Serious: Yes (Other)
  Sender: FDA-Public Use
  Company Number: GB-PFIZER INC-2019252996

PATIENT
  Age: 37 Year
  Sex: Female
  Weight: 108.8 kg

DRUGS (1)
  1. DEPO-MEDRONE [Suspect]
     Active Substance: METHYLPREDNISOLONE
     Indication: PLANTAR FASCIITIS
     Dosage: 1 DF, UNK (80MG/2 ML SUSPENSION, INITIAL)
     Route: 014
     Dates: start: 20170221, end: 20170221

REACTIONS (3)
  - Erythema [Recovered/Resolved]
  - Chest discomfort [Recovered/Resolved]
  - Urticaria [Recovered/Resolved]

NARRATIVE: CASE EVENT DATE: 20170221
